FAERS Safety Report 24227176 (Version 1)
Quarter: 2024Q3

REPORT INFORMATION
  Report Type: Spontaneous
  Country: SE (occurrence: SE)
  Receive Date: 20240820
  Receipt Date: 20240820
  Transmission Date: 20241016
  Serious: Yes (Hospitalization)
  Sender: BAYER
  Company Number: None

PATIENT
  Age: 33 Year
  Sex: Female

DRUGS (1)
  1. KYLEENA [Suspect]
     Active Substance: LEVONORGESTREL
     Dosage: 17.5?G/DAY
     Route: 015

REACTIONS (8)
  - Device issue [Recovered/Resolved]
  - Migraine with aura [Recovering/Resolving]
  - Pelvic pain [Recovering/Resolving]
  - Depression [Recovering/Resolving]
  - Anxiety [Recovering/Resolving]
  - Abdominal pain [Recovering/Resolving]
  - Weight increased [Recovering/Resolving]
  - Vulvovaginitis [Recovering/Resolving]
